FAERS Safety Report 5239672-0 (Version None)
Quarter: 2007Q1

REPORT INFORMATION
  Report Type: 
  Country: None (occurrence: None)
  Receive Date: 20070212
  Receipt Date: 20070202
  Transmission Date: 20070707
  Serious: Yes (Death, Other)
  Sender: FDA-Public Use
  Company Number: 2006JP000517

PATIENT
  Age: 2 Year
  Sex: Male

DRUGS (10)
  1. PROGRAF [Suspect]
     Indication: BONE MARROW TRANSPLANT
     Dates: start: 20050101, end: 20050101
  2. FUNGUARD (MICAFUNGIN) INJECTION [Concomitant]
  3. METHOTREXAT [Concomitant]
  4. FLOMOXEF (FLOMOXEF) [Concomitant]
  5. MEROPENEM (MEROPENEM) [Concomitant]
  6. MINOCYCLINE (MINOCYCLINE HYDROCHLORIDE) [Concomitant]
  7. TEICOPLANIN [Concomitant]
  8. METHYLPREDNISOLONE [Concomitant]
  9. FLUCONAL (FLUCONAZOLE) [Concomitant]
  10. POLYMXIN B (POLYMYXIN B) [Concomitant]

REACTIONS (13)
  - ACUTE RESPIRATORY DISTRESS SYNDROME [None]
  - COMPLICATIONS OF BONE MARROW TRANSPLANT [None]
  - CYTOMEGALOVIRUS ANTIGEN POSITIVE [None]
  - DIARRHOEA [None]
  - ERYTHEMA [None]
  - GASTROINTESTINAL DISORDER [None]
  - GASTROINTESTINAL MUCOSAL DISORDER [None]
  - GRAFT VERSUS HOST DISEASE [None]
  - SHOCK HAEMORRHAGIC [None]
  - STAPHYLOCOCCAL SEPSIS [None]
  - THROMBOTIC MICROANGIOPATHY [None]
  - UPPER GASTROINTESTINAL HAEMORRHAGE [None]
  - WHITE BLOOD CELL COUNT DECREASED [None]
